FAERS Safety Report 6293522-2 (Version None)
Quarter: 2009Q3

REPORT INFORMATION
  Report Type: 
  Country: None (occurrence: None)
  Receive Date: 20090803
  Receipt Date: 20090728
  Transmission Date: 20100115
  Serious: No
  Sender: FDA-Public Use
  Company Number: US-B.I. PHARMACEUTICALS,INC./RIDGEFIELD-2009-BP-06386BP

PATIENT
  Age: 51 Year
  Sex: Male

DRUGS (9)
  1. ATROVENT HFA [Suspect]
     Indication: BRONCHIAL OBSTRUCTION
     Dosage: 8 PUF
     Route: 055
     Dates: start: 20090517, end: 20090521
  2. PREZISTA [Concomitant]
     Indication: HIV INFECTION
  3. ACTOS [Concomitant]
     Indication: DIABETES MELLITUS
  4. HIV MED [Concomitant]
     Indication: HIV INFECTION
  5. INTELENCE [Concomitant]
     Indication: HIV INFECTION
  6. HYCINTRIS [Concomitant]
     Indication: HIV INFECTION
  7. ABACAVIR SULFATE [Concomitant]
     Indication: HIV INFECTION
  8. NORVIR [Concomitant]
     Indication: HIV INFECTION
  9. FAMCICLOVIR [Concomitant]
     Indication: HERPES ZOSTER

REACTIONS (2)
  - DRUG INEFFECTIVE [None]
  - INFLUENZA [None]
